FAERS Safety Report 15231215 (Version 3)
Quarter: 2018Q4

REPORT INFORMATION
  Report Type: Spontaneous
  Country: PT (occurrence: PT)
  Receive Date: 20180802
  Receipt Date: 20181116
  Transmission Date: 20190204
  Serious: Yes (Hospitalization, Other)
  Sender: FDA-Public Use
  Company Number: PHHY2018PT055718

PATIENT
  Age: 26 Year
  Sex: Male

DRUGS (16)
  1. CLENBUTEROL [Suspect]
     Active Substance: CLENBUTEROL
     Indication: PERFORMANCE ENHANCING PRODUCT USE
     Dosage: TID(6 WEEKS CYCLE BEFORE THE COMPETITION )
     Route: 065
  2. MULTIVITAMINS [Suspect]
     Active Substance: VITAMINS
     Indication: PRODUCT USED FOR UNKNOWN INDICATION
     Dosage: UNK(6 WEEKS CYCLE BEFORE THE COMPETITION )
     Route: 065
  3. TESTOSTERONE ENANTATE [Suspect]
     Active Substance: TESTOSTERONE
     Indication: PRODUCT USED FOR UNKNOWN INDICATION
     Dosage: 250 MG, QD(6 WEEKS CYCLE BEFORE THE COMPETITION )
     Route: 065
  4. ANASTROZOLE. [Suspect]
     Active Substance: ANASTROZOLE
     Indication: PRODUCT USED FOR UNKNOWN INDICATION
     Dosage: 1 MG, UNK(1 MG ID, 6 WEEKS CYCLE BEFORE THE COMPETITION )
     Route: 048
  5. SPIRONOLACTONE. [Suspect]
     Active Substance: SPIRONOLACTONE
     Indication: PRODUCT USED FOR UNKNOWN INDICATION
     Dosage: UNK(ON THE DAY OF COMPETITION )
     Route: 065
  6. LEVOTHYROXINE. [Suspect]
     Active Substance: LEVOTHYROXINE
     Indication: PRODUCT USED FOR UNKNOWN INDICATION
     Dosage: UNK (100 MCG ID, 6 WEEKS CYCLE BEFORE THE COMPETITION)
     Route: 065
  7. TESTOSTERONE CYPIONATE. [Suspect]
     Active Substance: TESTOSTERONE CYPIONATE
     Indication: PRODUCT USED FOR UNKNOWN INDICATION
     Dosage: UNK(500 MG/WK 6 WEEKS CYCLE BEFORE THE COMPETITION)
     Route: 065
  8. MESTEROLONE [Suspect]
     Active Substance: MESTEROLONE
     Indication: PERFORMANCE ENHANCING PRODUCT USE
     Dosage: UNK(25 MG 4-6 ID, 6 WEEKS CYCLE BEFORE THE COMPETITION )
     Route: 065
  9. LIOTHYRONINE [Suspect]
     Active Substance: LIOTHYRONINE
     Indication: PRODUCT USED FOR UNKNOWN INDICATION
     Dosage: UNK(25 MCG BID, 6 WEEKS CYCLE BEFORE THE COMPETITION )
     Route: 065
  10. CABERGOLINE. [Suspect]
     Active Substance: CABERGOLINE
     Indication: PERFORMANCE ENHANCING PRODUCT USE
     Dosage: 0.25 MG, QOD(6 WEEKS CYCLE BEFORE THE COMPETITION )
     Route: 065
  11. FLUOXYMESTERONE [Suspect]
     Active Substance: FLUOXYMESTERONE
     Indication: PERFORMANCE ENHANCING PRODUCT USE
     Dosage: 75 MG, QD(6 WEEKS CYCLE BEFORE THE COMPETITION )
     Route: 065
  12. ALTIZIDE [Suspect]
     Active Substance: ALTHIAZIDE
     Indication: PRODUCT USED FOR UNKNOWN INDICATION
     Dosage: UNK (ON THE DAY OF COMPETITION )
     Route: 065
  13. DROSTANOLONE PROPIONATE [Suspect]
     Active Substance: DROMOSTANOLONE PROPIONATE
     Indication: PERFORMANCE ENHANCING PRODUCT USE
     Dosage: 100 MG, QOD ( EVERY OTHER DAY, 6 WEEKS CYCLE BEFORE THE COMPETITION )
     Route: 065
  14. STANOZOLOL [Suspect]
     Active Substance: STANOZOLOL
     Indication: PERFORMANCE ENHANCING PRODUCT USE
     Dosage: UNK (40 MG ID, 6 WEEKS CYCLE BEFORE THE COMPETITION )
     Route: 065
  15. SUSTANON [Suspect]
     Active Substance: TESTOSTERONE
     Indication: PRODUCT USED FOR UNKNOWN INDICATION
     Dosage: 250 MG, UNK( TWICE WEEKLY, 6 WEEKS CYCLE BEFORE THE COMPETITION )
     Route: 065
  16. TRENBOLONE [Suspect]
     Active Substance: TRENBOLONE
     Indication: PERFORMANCE ENHANCING PRODUCT USE
     Dosage: 100 MG, QOD
     Route: 065

REACTIONS (8)
  - Product use issue [Unknown]
  - Diabetes mellitus [Recovered/Resolved]
  - Secondary hypogonadism [Recovered/Resolved]
  - Product use in unapproved indication [Unknown]
  - Autoimmune thyroiditis [Recovered/Resolved]
  - Drug abuse [Unknown]
  - Off label use [Unknown]
  - Haematocrit increased [Unknown]
